FAERS Safety Report 9960924 (Version 1)
Quarter: 2014Q1

REPORT INFORMATION
  Report Type: Report from Study
  Country: US (occurrence: US)
  Receive Date: 20140305
  Receipt Date: 20140305
  Transmission Date: 20141002
  Serious: No
  Sender: FDA-Public Use
  Company Number: US-ABBVIE-13P-163-1109766-00

PATIENT
  Age: 38 Year
  Sex: Male

DRUGS (6)
  1. HUMIRA [Suspect]
     Indication: CROHN^S DISEASE
     Dates: start: 20130508
  2. SOMA [Concomitant]
     Indication: PAIN
     Route: 048
  3. PREDNISONE [Concomitant]
     Indication: CROHN^S DISEASE
     Dosage: 5 MG THREE TIMES DAILY
     Route: 048
  4. CELEXA [Concomitant]
     Indication: ANXIETY
     Dosage: 40 MG DAILY
     Route: 048
  5. TRAMADOL [Concomitant]
     Indication: PAIN
     Route: 048
  6. HYDROXYZINE [Concomitant]
     Indication: ANXIETY
     Route: 048

REACTIONS (2)
  - Myalgia [Recovered/Resolved]
  - Gastrooesophageal reflux disease [Recovered/Resolved]
